FAERS Safety Report 20590595 (Version 1)
Quarter: 2022Q1

REPORT INFORMATION
  Report Type: Spontaneous
  Country: US (occurrence: US)
  Receive Date: 20220314
  Receipt Date: 20220314
  Transmission Date: 20220423
  Serious: Yes (Other)
  Sender: FDA-Public Use
  Company Number: US-JAZZ-2022-US-006188

PATIENT
  Sex: Female

DRUGS (8)
  1. SUNOSI [Suspect]
     Active Substance: SOLRIAMFETOL
     Indication: Hypersomnia
  2. TIZANIDINE [Concomitant]
     Active Substance: TIZANIDINE
  3. PRAMIPEXOLE [Concomitant]
     Active Substance: PRAMIPEXOLE
  4. PROMETHAZINE [Concomitant]
     Active Substance: PROMETHAZINE HYDROCHLORIDE
  5. CALCIUM CARBONATE [Concomitant]
     Active Substance: CALCIUM CARBONATE
  6. SODIUM PICOSULFATE [Concomitant]
     Active Substance: SODIUM PICOSULFATE
  7. BENEFIBER [Concomitant]
     Active Substance: STARCH, WHEAT
  8. OXYCODONE [Concomitant]
     Active Substance: OXYCODONE

REACTIONS (4)
  - Suicidal ideation [Unknown]
  - Carpal tunnel syndrome [Unknown]
  - Depression [Unknown]
  - Off label use [Unknown]
